FAERS Safety Report 5806953-9 (Version None)
Quarter: 2008Q3

REPORT INFORMATION
  Report Type: 
  Country: None (occurrence: None)
  Receive Date: 20080702
  Receipt Date: 20071030
  Transmission Date: 20090109
  Serious: Yes (Other)
  Sender: FDA-Public Use
  Company Number: PROG00207034740

PATIENT
  Age: 29 Year
  Sex: Female
  Weight: 56.5 kg

DRUGS (2)
  1. PROMETRIUM [Suspect]
     Indication: PRENATAL CARE
     Dosage: 200 MILLIGRAM(S) BID VAGINAL DAILY DOSE:  400 MILLIGRAM(S)
     Route: 067
     Dates: start: 20050101
  2. HUMALOG [Concomitant]

REACTIONS (1)
  - ABORTION SPONTANEOUS [None]
